FAERS Safety Report 25466548 (Version 1)
Quarter: 2025Q2

REPORT INFORMATION
  Report Type: Spontaneous
  Country: BG (occurrence: BG)
  Receive Date: 20250623
  Receipt Date: 20250623
  Transmission Date: 20250716
  Serious: Yes (Hospitalization)
  Sender: ROCHE
  Company Number: BG-BoehringerIngelheim-2025-BI-076438

PATIENT
  Age: 73 Year
  Sex: Male

DRUGS (1)
  1. METALYSE [Suspect]
     Active Substance: TENECTEPLASE
     Indication: Ischaemic stroke
     Route: 042

REACTIONS (2)
  - Drug ineffective [Unknown]
  - No adverse event [Unknown]
